FAERS Safety Report 9599294 (Version 1)
Quarter: 2013Q4

REPORT INFORMATION
  Report Type: Spontaneous
  Country: US (occurrence: US)
  Receive Date: 20131004
  Receipt Date: 20131004
  Transmission Date: 20140711
  Serious: No
  Sender: FDA-Public Use
  Company Number: US-AMGEN-USASP2013028392

PATIENT
  Age: 60 Year
  Sex: Female
  Weight: 99.77 kg

DRUGS (6)
  1. ENBREL [Suspect]
     Indication: PRODUCT USED FOR UNKNOWN INDICATION
     Dosage: 50 MG, QWK
     Route: 058
  2. MULTIVITAMINS, PLAIN [Concomitant]
     Dosage: UNK
  3. OMEGA 3                            /01334101/ [Concomitant]
     Dosage: 340 MG, UNK
  4. GLUCOSAMINE [Concomitant]
     Dosage: 500 MG, UNK
  5. VITAMIN E                          /00110501/ [Concomitant]
     Dosage: 400 UNIT, UNK
  6. BENAZEPRIL [Concomitant]
     Dosage: 10 MG, UNK

REACTIONS (2)
  - Injection site pain [Unknown]
  - Influenza like illness [Unknown]
